FAERS Safety Report 15120291 (Version 4)
Quarter: 2019Q2

REPORT INFORMATION
  Report Type: Spontaneous
  Country: IT (occurrence: IT)
  Receive Date: 20180709
  Receipt Date: 20190427
  Transmission Date: 20190711
  Serious: Yes (Other)
  Sender: FDA-Public Use
  Company Number: IT-AUROBINDO-AUR-APL-2018-034641

PATIENT

DRUGS (10)
  1. RITONAVIR. [Suspect]
     Active Substance: RITONAVIR
     Indication: HEPATIC CIRRHOSIS
     Dosage: 100 MILLIGRAM, ONCE A DAY
     Route: 048
     Dates: start: 201510, end: 2015
  2. RITONAVIR. [Suspect]
     Active Substance: RITONAVIR
     Indication: HEPATIC CIRRHOSIS
     Dosage: UNK
     Route: 016
  3. OMBITASVIR;PARITAPREVIR;RITONAVIR [Suspect]
     Active Substance: OMBITASVIR\PARITAPREVIR\RITONAVIR
     Indication: HEPATIC CIRRHOSIS
  4. PARITAPREVIR [Suspect]
     Active Substance: PARITAPREVIR
     Indication: CHRONIC HEPATITIS C
     Dosage: 150 MILLIGRAM, ONCE A DAY
     Route: 048
     Dates: start: 201510, end: 2015
  5. RITONAVIR. [Suspect]
     Active Substance: RITONAVIR
     Indication: CHRONIC HEPATITIS C
  6. RIBAVIRIN CAPSULE [Suspect]
     Active Substance: RIBAVIRIN
     Indication: CHRONIC HEPATITIS C
     Dosage: 1000 MILLIGRAM TWO DOSES PER DAY (WEIGHT BASED)
     Route: 048
     Dates: start: 201510, end: 2015
  7. PARITAPREVIR [Suspect]
     Active Substance: PARITAPREVIR
     Indication: HEPATIC CIRRHOSIS
     Dosage: UNK
     Route: 016
  8. OMBITASVIR [Suspect]
     Active Substance: OMBITASVIR
     Indication: CHRONIC HEPATITIS C
     Dosage: 25 MILLIGRAM, ONCE A DAY
     Route: 048
     Dates: start: 201510, end: 2015
  9. RIBAVIRIN CAPSULE [Suspect]
     Active Substance: RIBAVIRIN
     Indication: HEPATIC CIRRHOSIS
  10. OMBITASVIR;PARITAPREVIR;RITONAVIR [Suspect]
     Active Substance: OMBITASVIR\PARITAPREVIR\RITONAVIR
     Indication: HEPATITIS C
     Dosage: 25/150/100 MG MG ORAL ONCE A DAY
     Route: 048
     Dates: start: 201510

REACTIONS (3)
  - Treatment failure [Unknown]
  - Pathogen resistance [Unknown]
  - Off label use [Unknown]

NARRATIVE: CASE EVENT DATE: 2015
